FAERS Safety Report 23682907 (Version 1)
Quarter: 2024Q1

REPORT INFORMATION
  Report Type: Spontaneous
  Country: US (occurrence: US)
  Receive Date: 20240328
  Receipt Date: 20240328
  Transmission Date: 20240410
  Serious: Yes (Hospitalization)
  Sender: FDA-Public Use
  Company Number: US-RECORDATI-2023002909

PATIENT

DRUGS (7)
  1. ISTURISA [Suspect]
     Active Substance: OSILODROSTAT PHOSPHATE
     Indication: Pituitary-dependent Cushing^s syndrome
     Dosage: 1 MILLIGRAM, BID
     Route: 048
     Dates: start: 20230317, end: 20231226
  2. VITAMIN D3 [Suspect]
     Active Substance: CHOLECALCIFEROL
     Indication: Product used for unknown indication
     Dosage: 125 MICROGRAM
  3. LISINOPRIL AND HYDROCHLOROTHIAZIDE [Concomitant]
     Active Substance: HYDROCHLOROTHIAZIDE\LISINOPRIL
     Indication: Product used for unknown indication
     Dosage: 25 MILLIGRAM
  4. METOPROLOL TARTRATE [Concomitant]
     Active Substance: METOPROLOL TARTRATE
     Indication: Product used for unknown indication
     Dosage: 50 MILLIGRAM
  5. GLIMEPIRIDE [Concomitant]
     Active Substance: GLIMEPIRIDE
     Indication: Product used for unknown indication
     Dosage: 1 MILLIGRAM
  6. ROSUVASTATIN [Concomitant]
     Active Substance: ROSUVASTATIN
     Indication: Product used for unknown indication
     Dosage: 10 MILLIGRAM
  7. SKYRIZI [Concomitant]
     Active Substance: RISANKIZUMAB-RZAA
     Indication: Product used for unknown indication
     Dosage: 150 MG/ML

REACTIONS (2)
  - Pruritus [Unknown]
  - Rash [Unknown]

NARRATIVE: CASE EVENT DATE: 20230509
